FAERS Safety Report 7725850-5 (Version None)
Quarter: 2011Q3

REPORT INFORMATION
  Report Type: 
  Country: None (occurrence: None)
  Receive Date: 20110902
  Receipt Date: 20110823
  Transmission Date: 20111222
  Serious: Yes (Other)
  Sender: FDA-Public Use
  Company Number: US-PFIZER INC-2011204403

PATIENT
  Sex: Female

DRUGS (7)
  1. FUROSEMIDE [Suspect]
     Route: 065
  2. ZOLOFT [Suspect]
     Route: 065
  3. CRESTOR [Suspect]
     Route: 048
  4. AMITRIPTYLINE HCL [Suspect]
     Route: 065
  5. LISINOPRIL [Suspect]
     Route: 065
  6. NEXIUM [Suspect]
     Route: 048
  7. ATENOLOL [Suspect]
     Route: 065

REACTIONS (5)
  - MEMORY IMPAIRMENT [None]
  - HEAD INJURY [None]
  - CEREBRAL HAEMORRHAGE [None]
  - FALL [None]
  - DEMENTIA [None]
